FAERS Safety Report 4879965-X (Version None)
Quarter: 2006Q1

REPORT INFORMATION
  Report Type: 
  Country: None (occurrence: None)
  Receive Date: 20060113
  Receipt Date: 20060109
  Transmission Date: 20060701
  Serious: Yes (Hospitalization)
  Sender: FDA-Public Use
  Company Number: US-MERCK-0601USA00950

PATIENT

DRUGS (3)
  1. CANCIDAS [Suspect]
     Route: 042
  2. CANCIDAS [Suspect]
     Route: 042
  3. HYDROCORTISONE [Concomitant]
     Route: 065

REACTIONS (1)
  - THERAPY NON-RESPONDER [None]
